FAERS Safety Report 12779257 (Version 3)
Quarter: 2020Q4

REPORT INFORMATION
  Report Type: Spontaneous
  Country: US (occurrence: US)
  Receive Date: 20160926
  Receipt Date: 20201027
  Transmission Date: 20210113
  Serious: No
  Sender: FDA-Public Use
  Company Number: US-JAZZ-2016-US-011346

PATIENT
  Sex: Female

DRUGS (41)
  1. XYREM [Suspect]
     Active Substance: SODIUM OXYBATE
     Dosage: DOSE ADJUSTMENTS
     Route: 048
     Dates: start: 200407, end: 201605
  2. DDAVP [Concomitant]
     Active Substance: DESMOPRESSIN ACETATE
  3. EC-NAPROSYN [Concomitant]
     Active Substance: NAPROXEN
  4. GAS-X [Concomitant]
     Active Substance: DIMETHICONE
  5. ESOMEPRAZOLE MAGNESIUM. [Concomitant]
     Active Substance: ESOMEPRAZOLE MAGNESIUM
  6. MELATONIN [Concomitant]
     Active Substance: MELATONIN
  7. LUGOL [Concomitant]
     Active Substance: IODINE\POTASSIUM IODIDE
  8. CELEBREX [Concomitant]
     Active Substance: CELECOXIB
  9. PREVACID [Concomitant]
     Active Substance: LANSOPRAZOLE
  10. XYREM [Suspect]
     Active Substance: SODIUM OXYBATE
     Dosage: 5.25 G, FIRST DOSE
     Route: 048
     Dates: start: 201605
  11. MIRALAX [Concomitant]
     Active Substance: POLYETHYLENE GLYCOL 3350
  12. VITAMIN D3 [Concomitant]
     Active Substance: CHOLECALCIFEROL
  13. ADVAIR HFA [Concomitant]
     Active Substance: FLUTICASONE PROPIONATE\SALMETEROL XINAFOATE
  14. LORATADINE. [Concomitant]
     Active Substance: LORATADINE
  15. BORIC ACID [Concomitant]
     Active Substance: BORIC ACID
  16. SYSTANE BALANCE [Concomitant]
     Active Substance: PROPYLENE GLYCOL
  17. TYLENOL EXTRA STRENGTH [Concomitant]
     Active Substance: ACETAMINOPHEN
  18. TYLENOL EXTRA STRENGTH [Concomitant]
     Active Substance: ACETAMINOPHEN
  19. CYTOMEL [Concomitant]
     Active Substance: LIOTHYRONINE SODIUM
  20. FLUTICASONE PROPIONATE. [Concomitant]
     Active Substance: FLUTICASONE PROPIONATE
  21. FISH OIL [Concomitant]
     Active Substance: FISH OIL
  22. MAGNESIUM [Concomitant]
     Active Substance: MAGNESIUM
  23. KLONOPIN [Concomitant]
     Active Substance: CLONAZEPAM
  24. GAS-X MAX STRENGTH [Concomitant]
  25. SODIUM CHLORIDE. [Concomitant]
     Active Substance: SODIUM CHLORIDE
  26. CHLORELLA SPP. [Concomitant]
  27. REFRESH TEARS [Concomitant]
     Active Substance: CARBOXYMETHYLCELLULOSE SODIUM
  28. NASONEX [Concomitant]
     Active Substance: MOMETASONE FUROATE
  29. LIDOCAINE. [Concomitant]
     Active Substance: LIDOCAINE
  30. DOXEPIN [Concomitant]
     Active Substance: DOXEPIN
  31. AMBIEN [Concomitant]
     Active Substance: ZOLPIDEM TARTRATE
  32. CHROMIUM PICOLINATE [Concomitant]
     Active Substance: CHROMIUM PICOLINATE
  33. NALTREXONE HCL [Concomitant]
     Active Substance: NALTREXONE HYDROCHLORIDE
  34. FLONASE ALLERGY RELIEF [Concomitant]
     Active Substance: FLUTICASONE PROPIONATE
  35. XYREM [Suspect]
     Active Substance: SODIUM OXYBATE
     Indication: NARCOLEPSY
     Dosage: 2.25 G, BID
     Route: 048
     Dates: start: 200405, end: 200407
  36. XYREM [Suspect]
     Active Substance: SODIUM OXYBATE
     Dosage: 4.25 G, SECOND DOSE
     Route: 048
     Dates: start: 201605
  37. PLANTAGO OVATA [Concomitant]
     Active Substance: HERBALS\PLANTAGO OVATA LEAF
  38. PROAIR HFA [Concomitant]
     Active Substance: ALBUTEROL SULFATE
  39. SYNTHROID [Concomitant]
     Active Substance: LEVOTHYROXINE SODIUM
  40. VYVANSE [Concomitant]
     Active Substance: LISDEXAMFETAMINE DIMESYLATE
  41. CYCLOBENZAPRINE. [Concomitant]
     Active Substance: CYCLOBENZAPRINE

REACTIONS (3)
  - Turbinoplasty [Unknown]
  - Rotator cuff syndrome [Recovered/Resolved]
  - Rotator cuff syndrome [Unknown]

NARRATIVE: CASE EVENT DATE: 2006
